FAERS Safety Report 16843138 (Version 1)
Quarter: 2019Q4

REPORT INFORMATION
  Report Type: Spontaneous
  Country: US (occurrence: US)
  Receive Date: 20190923
  Receipt Date: 20190923
  Transmission Date: 20200122
  Serious: No
  Sender: FDA-Public Use
  Company Number: None

PATIENT
  Age: 62 Year
  Sex: Male
  Weight: 107.5 kg

DRUGS (1)
  1. VOSEVI [Suspect]
     Active Substance: SOFOSBUVIR\VELPATASVIR\VOXILAPREVIR
     Indication: CHRONIC HEPATITIS C
     Route: 048
     Dates: start: 20180430, end: 20180627

REACTIONS (6)
  - Therapy cessation [None]
  - Hepatic cirrhosis [None]
  - Oedema peripheral [None]
  - Vomiting [None]
  - Nausea [None]
  - Ascites [None]

NARRATIVE: CASE EVENT DATE: 20180627
